FAERS Safety Report 8420467-1 (Version None)
Quarter: 2012Q2

REPORT INFORMATION
  Report Type: 
  Country: None (occurrence: None)
  Receive Date: 20120608
  Receipt Date: 20120605
  Transmission Date: 20120825
  Serious: Yes (Other)
  Sender: FDA-Public Use
  Company Number: AU-AMGEN-AUSSP2012034783

PATIENT
  Sex: Female

DRUGS (5)
  1. EPIRUBICIN [Concomitant]
     Indication: BREAST CANCER
  2. FLUOROURACIL [Concomitant]
     Indication: BREAST CANCER
  3. CYCLOPHOSPHAMIDE [Concomitant]
     Indication: BREAST CANCER
  4. NEULASTA [Suspect]
     Indication: CHEMOTHERAPY
  5. DOCETAXEL [Concomitant]
     Indication: BREAST CANCER

REACTIONS (1)
  - FEBRILE NEUTROPENIA [None]
